FAERS Safety Report 7150277-7 (Version None)
Quarter: 2010Q4

REPORT INFORMATION
  Report Type: 
  Country: None (occurrence: None)
  Receive Date: 20101123
  Receipt Date: 20100908
  Transmission Date: 20110411
  Serious: No
  Sender: FDA-Public Use
  Company Number: 018385

PATIENT
  Sex: Male
  Weight: 79 kg

DRUGS (17)
  1. CIMZIA [Suspect]
     Indication: CROHN'S DISEASE
     Dosage: (2 DF 1X/MONTH SUBCUTANEOUS), (2 DF 1X/MONTH SUBCUTANEOUS)
     Route: 058
     Dates: start: 20100723
  2. CIMZIA [Suspect]
     Indication: CROHN'S DISEASE
     Dosage: (2 DF 1X/MONTH SUBCUTANEOUS), (2 DF 1X/MONTH SUBCUTANEOUS)
     Route: 058
     Dates: start: 20100820
  3. CIMZIA [Suspect]
  4. OXYCODONE HCL [Concomitant]
  5. PROZAC /00724401/ [Concomitant]
  6. HYDROCHLOROTHIAZIDE [Concomitant]
  7. LISINOPRIL [Concomitant]
  8. ADDERALL 10 [Concomitant]
  9. LOMOTIL /00034001/ [Concomitant]
  10. ASPIRIN [Concomitant]
  11. TEMAZEPAM [Concomitant]
  12. ANDROGEL [Concomitant]
  13. IMITREX [Concomitant]
  14. FLAGYL [Concomitant]
  15. VITAMIN D [Concomitant]
  16. FISH OIL [Concomitant]
  17. CHONDROITIN W/GLUCOSAMINE /02118501/ [Concomitant]

REACTIONS (10)
  - ARTHRALGIA [None]
  - CROHN'S DISEASE [None]
  - DRUG INEFFECTIVE [None]
  - INGROWN HAIR [None]
  - INSOMNIA [None]
  - NAUSEA [None]
  - RASH PUSTULAR [None]
  - SCAB [None]
  - SEBORRHOEA [None]
  - VENOUS INJURY [None]
